FAERS Safety Report 26006518 (Version 3)
Quarter: 2025Q4

REPORT INFORMATION
  Report Type: Spontaneous
  Country: AU (occurrence: AU)
  Receive Date: 20251106
  Receipt Date: 20251125
  Transmission Date: 20260117
  Serious: Yes (Other)
  Sender: AMGEN
  Company Number: AU-AMGEN-AUSSP2025215039

PATIENT
  Age: 27 Year
  Sex: Female

DRUGS (3)
  1. ADALIMUMAB [Suspect]
     Active Substance: ADALIMUMAB
     Indication: Colitis ulcerative
     Dosage: UNK
     Route: 058
  2. INFLIXIMAB [Suspect]
     Active Substance: INFLIXIMAB
     Indication: Colitis ulcerative
     Dosage: UNK
     Route: 058
  3. UPADACITINIB [Concomitant]
     Active Substance: UPADACITINIB
     Indication: Colitis ulcerative
     Dosage: UNK
     Route: 058

REACTIONS (4)
  - Anal fistula [Unknown]
  - Anal abscess [Unknown]
  - Therapeutic product effect decreased [Unknown]
  - Drain placement [Unknown]

NARRATIVE: CASE EVENT DATE: 20240101
